FAERS Safety Report 26136686 (Version 1)
Quarter: 2025Q4

REPORT INFORMATION
  Report Type: Spontaneous
  Country: US (occurrence: US)
  Receive Date: 20251209
  Receipt Date: 20251209
  Transmission Date: 20260118
  Serious: No
  Sender: BAYER HEALTHCARE LLC
  Company Number: US-BAYER-2025A161412

PATIENT
  Age: 58 Year
  Sex: Female
  Weight: 76.6 kg

DRUGS (6)
  1. CLARITIN [Suspect]
     Active Substance: LORATADINE
     Indication: Infusion site pain
     Dosage: UNK
     Dates: start: 2025
  2. TRIAMCINOLONE [Concomitant]
     Active Substance: TRIAMCINOLONE
     Indication: Pain
  3. LIDOCAINE [Concomitant]
     Active Substance: LIDOCAINE
     Indication: Pain
  4. MACITENTAN\TADALAFIL [Concomitant]
     Active Substance: MACITENTAN\TADALAFIL
  5. WINREVAIR [Concomitant]
     Active Substance: SOTATERCEPT-CSRK
  6. REMODULIN [Concomitant]
     Active Substance: TREPROSTINIL
     Indication: Pulmonary arterial hypertension
     Dosage: 0.0336 ?G/KG
     Route: 058

REACTIONS (1)
  - Drug effective for unapproved indication [None]

NARRATIVE: CASE EVENT DATE: 20250101
